FAERS Safety Report 7075273-X (Version None)
Quarter: 2010Q4

REPORT INFORMATION
  Report Type: 
  Country: None (occurrence: None)
  Receive Date: 20101030
  Receipt Date: 20100621
  Transmission Date: 20110411
  Serious: No
  Sender: FDA-Public Use
  Company Number: US-WYE-H16081110

PATIENT
  Age: 71 Year
  Sex: Female
  Weight: 55.84 kg

DRUGS (4)
  1. ALAVERT D-12 [Suspect]
     Indication: SNEEZING
     Dosage: 1 TABLET X 1
     Route: 048
     Dates: start: 20100604, end: 20100604
  2. ALAVERT D-12 [Suspect]
     Indication: NASAL CONGESTION
  3. ALAVERT D-12 [Suspect]
     Indication: RHINORRHOEA
  4. KAPIDEX [Concomitant]

REACTIONS (2)
  - FEELING JITTERY [None]
  - TOOTH DISORDER [None]
